FAERS Safety Report 12849376 (Version 2)
Quarter: 2016Q4

REPORT INFORMATION
  Report Type: Spontaneous
  Country: DE (occurrence: DE)
  Receive Date: 20161014
  Receipt Date: 20161222
  Transmission Date: 20170207
  Serious: Yes (Hospitalization)
  Sender: FDA-Public Use
  Company Number: DE-TEVA-701001GER

PATIENT
  Age: 48 Year
  Sex: Male

DRUGS (3)
  1. CITALOPRAM [Suspect]
     Active Substance: CITALOPRAM HYDROBROMIDE
     Indication: ANTIDEPRESSANT THERAPY
     Dosage: 20 MILLIGRAM DAILY;
     Route: 065
  2. ASPIRIN. [Suspect]
     Active Substance: ASPIRIN
     Indication: INSOMNIA
     Dosage: 40 MG, TO BE TAKEN AS NECESSARY
     Route: 065
  3. CITALOPRAM [Suspect]
     Active Substance: CITALOPRAM HYDROBROMIDE
     Indication: ANTIDEPRESSANT THERAPY
     Dosage: 10 MILLIGRAM DAILY; INTAKE IN THE MORNING
     Route: 065

REACTIONS (4)
  - Orthostatic hypotension [Unknown]
  - Laceration [Unknown]
  - Atrial fibrillation [Recovered/Resolved]
  - Syncope [Recovered/Resolved]
